FAERS Safety Report 7683900-9 (Version None)
Quarter: 2011Q3

REPORT INFORMATION
  Report Type: 
  Country: None (occurrence: None)
  Receive Date: 20110815
  Receipt Date: 20110809
  Transmission Date: 20111222
  Serious: Yes (Other)
  Sender: FDA-Public Use
  Company Number: US-PFIZER INC-2011067147

PATIENT
  Sex: Male
  Weight: 118 kg

DRUGS (12)
  1. LEVITRA [Concomitant]
     Dosage: 10 (UNIT UNSPECIFIED) AS DIRECTED
  2. VIAGRA [Concomitant]
     Dosage: 50 (UNIT UNSPECIFED) AS DIRECTED
  3. LYRICA [Suspect]
     Indication: NEUROPATHY PERIPHERAL
  4. CYMBALTA [Concomitant]
     Dosage: 60 (UNIT UNSPECIFIED)
  5. NEXIUM [Concomitant]
     Indication: GASTROOESOPHAGEAL REFLUX DISEASE
     Dosage: 40 MG, 1X/DAY
     Route: 048
  6. FLEXERIL [Concomitant]
     Indication: MUSCLE SPASMS
     Dosage: 10 MG, EVERY 6-8 HOURS AS NEEDED
     Route: 048
  7. OXYCONTIN [Concomitant]
     Dosage: 40 (UNIT UNSPECIFIED) AS NEEDED
  8. VALIUM [Concomitant]
     Dosage: 10 MG, EVERY 12 HOURS AS NEEDED
     Route: 048
  9. BENICAR [Concomitant]
     Indication: HYPERTENSION
     Dosage: 40MG DAILY
  10. LYRICA [Suspect]
     Indication: FIBROMYALGIA
     Dosage: 75 MG, ONE OR TWO TIMES A DAY AS NEEDED
     Route: 048
     Dates: start: 20100201
  11. BENICAR HCT [Concomitant]
     Dosage: 40-25 MG, 1 AT  NIGHT
     Route: 048
  12. FISH OIL [Concomitant]
     Dosage: 2400 MG, 2X/DAY

REACTIONS (3)
  - BLOOD GLUCOSE INCREASED [None]
  - DYSKINESIA [None]
  - VISION BLURRED [None]
